FAERS Safety Report 24230527 (Version 1)
Quarter: 2024Q3

REPORT INFORMATION
  Report Type: Spontaneous
  Country: EG (occurrence: EG)
  Receive Date: 20240821
  Receipt Date: 20240821
  Transmission Date: 20241016
  Serious: Yes (Other)
  Sender: NOVO NORDISK
  Company Number: EG-NOVOPROD-1270037

PATIENT
  Age: 649 Month
  Sex: Female
  Weight: 130 kg

DRUGS (7)
  1. ASPIRIN [Concomitant]
     Active Substance: ASPIRIN
     Indication: Anticoagulant therapy
     Dosage: 2 TAB. AFTER LUNCH
     Route: 048
  2. ATORVASTATIN CALCIUM [Concomitant]
     Active Substance: ATORVASTATIN CALCIUM
     Indication: Hyperlipidaemia
     Dosage: 1 TAB./DAY
     Route: 048
  3. INSULIN HUMAN [Suspect]
     Active Substance: INSULIN HUMAN
     Indication: Diabetes mellitus
     Dosage: 110 IU, QD (65 IU MORN. AND 45 IU NIGHT)
     Route: 058
  4. CIDOPHAGE [Concomitant]
     Indication: Diabetes mellitus
     Dosage: 2 TAB. AFTER LUNCH
     Route: 048
  5. NEBIVOLOL HYDROCHLORIDE [Concomitant]
     Active Substance: NEBIVOLOL HYDROCHLORIDE
     Indication: Hypertension
     Dosage: 1 TAB. ON EMPTY STOMACH
     Route: 048
  6. BISOPROLOL FUMARATE [Concomitant]
     Active Substance: BISOPROLOL FUMARATE
     Indication: Hypertension
     Dosage: UNK
  7. LASIX [Concomitant]
     Active Substance: FUROSEMIDE
     Indication: Skin oedema
     Dosage: 1 TAB./DAY
     Route: 048

REACTIONS (1)
  - Pericardial effusion [Not Recovered/Not Resolved]
